FAERS Safety Report 15986434 (Version 1)
Quarter: 2019Q1

REPORT INFORMATION
  Report Type: Spontaneous
  Country: NO (occurrence: NO)
  Receive Date: 20190220
  Receipt Date: 20190220
  Transmission Date: 20190418
  Serious: Yes (Congenital Anomaly, Other)
  Sender: FDA-Public Use
  Company Number: NO-GLAXOSMITHKLINE-NO2019026292

PATIENT
  Age: 5 Year
  Sex: Female

DRUGS (4)
  1. FOLSYRE NAF [Concomitant]
     Active Substance: FOLIC ACID
     Dosage: 0.4 MG, QD
     Route: 048
     Dates: start: 201211, end: 201305
  2. TOPAMAX [Suspect]
     Active Substance: TOPIRAMATE
     Indication: EPILEPSY
     Dosage: 550 MG, QD
     Route: 064
     Dates: start: 2012, end: 201305
  3. LAMICTAL [Suspect]
     Active Substance: LAMOTRIGINE
     Indication: EPILEPSY
     Dosage: 450 MG, QD
     Route: 064
  4. FOLSYRE NAF [Concomitant]
     Active Substance: FOLIC ACID
     Indication: PROPHYLAXIS
     Dosage: 4 MG, UNK
     Route: 064
     Dates: start: 2012, end: 201212

REACTIONS (4)
  - Foetal exposure during pregnancy [Unknown]
  - Duane^s syndrome [Unknown]
  - Eye movement disorder [Not Recovered/Not Resolved]
  - Deafness [Not Recovered/Not Resolved]
